FAERS Safety Report 10164067 (Version 2)
Quarter: 2014Q2

REPORT INFORMATION
  Report Type: Spontaneous
  Country: US (occurrence: US)
  Receive Date: 20140510
  Receipt Date: 20140510
  Transmission Date: 20141212
  Serious: No
  Sender: FDA-Public Use
  Company Number: US-BRISTOL-MYERS SQUIBB COMPANY-19889674

PATIENT
  Age: 62 Year
  Sex: Male
  Weight: 113.38 kg

DRUGS (5)
  1. BYETTA PEN DISPOSABLE [Suspect]
     Indication: TYPE 2 DIABETES MELLITUS
     Route: 058
     Dates: end: 20131204
  2. METFORMIN HCL [Suspect]
  3. GLIPIZIDE [Suspect]
  4. LISINOPRIL [Concomitant]
  5. LOVASTATIN [Concomitant]

REACTIONS (6)
  - Product quality issue [Unknown]
  - Abdominal pain [Recovering/Resolving]
  - Dizziness [Unknown]
  - Nausea [Not Recovered/Not Resolved]
  - Blood glucose decreased [Unknown]
  - Weight decreased [Unknown]
